FAERS Safety Report 16248916 (Version 1)
Quarter: 2019Q2

REPORT INFORMATION
  Report Type: Spontaneous
  Country: US (occurrence: US)
  Receive Date: 20190325
  Receipt Date: 20190325
  Transmission Date: 20190711
  Serious: Yes (Other)
  Sender: FDA-Public Use
  Company Number: None

PATIENT
  Age: 61 Year
  Sex: Male
  Weight: 71.67 kg

DRUGS (1)
  1. PROAIR HFA [Suspect]
     Active Substance: ALBUTEROL SULFATE
     Indication: CHRONIC OBSTRUCTIVE PULMONARY DISEASE
     Dosage: ?          OTHER FREQUENCY:EVERY 6 HRS-NEEDED;?
     Route: 055
     Dates: start: 20190224, end: 20190225

REACTIONS (3)
  - Headache [None]
  - Obstructive airways disorder [None]
  - Dyspnoea [None]

NARRATIVE: CASE EVENT DATE: 20190224
